FAERS Safety Report 21629571 (Version 2)
Quarter: 2022Q4

REPORT INFORMATION
  Report Type: Spontaneous
  Country: CA (occurrence: CA)
  Receive Date: 20221122
  Receipt Date: 20221220
  Transmission Date: 20230113
  Serious: No
  Sender: FDA-Public Use
  Company Number: CA-PFIZER INC-202201209382

PATIENT
  Age: 69 Year
  Sex: Male
  Weight: 72.562 kg

DRUGS (1)
  1. RUXIENCE [Suspect]
     Active Substance: RITUXIMAB-PVVR
     Indication: Granulomatosis with polyangiitis
     Dosage: 500 MG, FOR ONE DOSE -
     Route: 042
     Dates: start: 20221114

REACTIONS (4)
  - Off label use [Unknown]
  - Off label use [Unknown]
  - Intentional product use issue [Unknown]
  - Weight decreased [Unknown]
